FAERS Safety Report 9264784 (Version 1)
Quarter: 2013Q2

REPORT INFORMATION
  Report Type: Spontaneous
  Country: US (occurrence: None)
  Receive Date: 20130429
  Receipt Date: 20130429
  Transmission Date: 20140414
  Serious: No
  Sender: FDA-Public Use
  Company Number: None

PATIENT
  Age: 70 Year
  Sex: Male
  Weight: 91.82 kg

DRUGS (4)
  1. CAMPTOSAR [Suspect]
  2. ELOXATIN [Suspect]
  3. BEVACIZUMAB [Suspect]
  4. COLACE [Concomitant]

REACTIONS (1)
  - Diarrhoea [None]
